FAERS Safety Report 4889382-4 (Version None)
Quarter: 2006Q1

REPORT INFORMATION
  Report Type: 
  Country: None (occurrence: None)
  Receive Date: 20060124
  Receipt Date: 20050712
  Transmission Date: 20060701
  Serious: No
  Sender: FDA-Public Use
  Company Number: US-GLAXOSMITHKLINE-A0565922A

PATIENT
  Sex: Female

DRUGS (1)
  1. HYCAMTIN [Suspect]
     Dosage: 2.5MGM2 CYCLIC
     Route: 042

REACTIONS (2)
  - CHEST PAIN [None]
  - OESOPHAGEAL PAIN [None]
